FAERS Safety Report 10904917 (Version 2)
Quarter: 2015Q1

REPORT INFORMATION
  Report Type: Spontaneous
  Country: US (occurrence: US)
  Receive Date: 20150311
  Receipt Date: 20150331
  Transmission Date: 20150721
  Serious: No
  Sender: FDA-Public Use
  Company Number: US-BAYER-2015-037090

PATIENT
  Age: 43 Year
  Sex: Female
  Weight: 99.77 kg

DRUGS (8)
  1. IMITREX [Concomitant]
     Active Substance: SUMATRIPTAN\SUMATRIPTAN SUCCINATE
  2. ALEVE [Suspect]
     Active Substance: NAPROXEN SODIUM
     Indication: BACK PAIN
     Dosage: 1 DF, BID
     Route: 048
     Dates: start: 201503, end: 201503
  3. METFORMIN [Concomitant]
     Active Substance: METFORMIN HYDROCHLORIDE
  4. ALEVE [Suspect]
     Active Substance: NAPROXEN SODIUM
     Indication: BACK PAIN
     Dosage: UNK DF, ONE IN MORNING AND TWO IN EVENING
     Route: 048
     Dates: start: 201503, end: 201503
  5. AMBIEN [Concomitant]
     Active Substance: ZOLPIDEM TARTRATE
  6. LEVOTHYROXINE [Concomitant]
     Active Substance: LEVOTHYROXINE
  7. PRILOSEC [Concomitant]
     Active Substance: OMEPRAZOLE MAGNESIUM
  8. ALEVE [Suspect]
     Active Substance: NAPROXEN SODIUM
     Indication: BACK PAIN
     Dosage: 1 DF, BID
     Route: 048
     Dates: start: 201503, end: 201503

REACTIONS (3)
  - Incorrect dose administered [None]
  - Drug ineffective [None]
  - Expired product administered [Unknown]

NARRATIVE: CASE EVENT DATE: 201503
